FAERS Safety Report 9526649 (Version 2)
Quarter: 2013Q4

REPORT INFORMATION
  Report Type: Spontaneous
  Country: US (occurrence: None)
  Receive Date: 20130312
  Receipt Date: 20131216
  Transmission Date: 20140711
  Serious: No
  Sender: FDA-Public Use
  Company Number: TH-2012-00852

PATIENT
  Age: 44 Year
  Sex: Male

DRUGS (1)
  1. EGRIFTA [Suspect]
     Indication: PRODUCT USED FOR UNKNOWN INDICATION
     Dosage: 1 IN 1 D? ? ? ? ? ? ? ?

REACTIONS (8)
  - Upper respiratory tract infection [None]
  - Sinusitis [None]
  - Oedema [None]
  - Asthma [None]
  - Breast tenderness [None]
  - Blood pressure increased [None]
  - Injection site bruising [None]
  - Blood glucose increased [None]
